FAERS Safety Report 14668906 (Version 9)
Quarter: 2018Q2

REPORT INFORMATION
  Report Type: Spontaneous
  Country: DE (occurrence: DE)
  Receive Date: 20180322
  Receipt Date: 20180514
  Transmission Date: 20180711
  Serious: Yes (Hospitalization, Other)
  Sender: FDA-Public Use
  Company Number: DE-PFIZER INC-2018101407

PATIENT
  Age: 27 Year
  Sex: Female

DRUGS (5)
  1. BREVACTID [Suspect]
     Active Substance: GONADOTROPHIN, CHORIONIC
     Dosage: UNK
     Route: 065
  2. FRAGMIN P [Concomitant]
     Active Substance: DALTEPARIN SODIUM
     Dosage: UNK
     Route: 065
  3. PUREGON (FOLLITROPIN BETA) [Suspect]
     Active Substance: FOLLITROPIN
     Dosage: UNK
     Route: 065
  4. SYNARELA [Suspect]
     Active Substance: NAFARELIN ACETATE
     Dosage: UNK
     Route: 065
  5. PROGESTAN [Suspect]
     Active Substance: PROGESTERONE
     Dosage: UNK
     Route: 065

REACTIONS (2)
  - Vomiting [Unknown]
  - Ovarian hyperstimulation syndrome [Unknown]

NARRATIVE: CASE EVENT DATE: 20180215
